FAERS Safety Report 5661997-5 (Version None)
Quarter: 2008Q2

REPORT INFORMATION
  Report Type: 
  Country: None (occurrence: None)
  Receive Date: 20080201
  Receipt Date: 20050930
  Transmission Date: 20081010
  Serious: Yes (Other)
  Sender: FDA-Public Use
  Company Number: 421147

PATIENT
  Age: 52 Year
  Sex: Female

DRUGS (10)
  1. COPEGUS [Suspect]
     Indication: HEPATITIS C
     Dosage: ORAL
     Route: 048
     Dates: start: 20050920
  2. PEG-INTRON [Suspect]
     Indication: HEPATITIS C
     Dosage: SUBCUTANEOUS
     Route: 058
     Dates: start: 20050926
  3. ALBUTEROL [Concomitant]
  4. DIAZEPAM [Concomitant]
  5. DIOVAN [Concomitant]
  6. LASIX [Concomitant]
  7. NORVASC [Concomitant]
  8. RESTORIL [Concomitant]
  9. ACETAMINOPHEN [Concomitant]
  10. VICODIN [Concomitant]

REACTIONS (1)
  - SUICIDAL IDEATION [None]
